FAERS Safety Report 21093074 (Version 1)
Quarter: 2022Q3

REPORT INFORMATION
  Report Type: Spontaneous
  Country: US (occurrence: US)
  Receive Date: 20220718
  Receipt Date: 20220718
  Transmission Date: 20221027
  Serious: No
  Sender: FDA-Public Use
  Company Number: US-NOVARTISTESTPH-NVSC2022US161317

PATIENT
  Sex: Female

DRUGS (1)
  1. XIIDRA [Suspect]
     Active Substance: LIFITEGRAST
     Indication: Dry eye
     Dosage: 50 MG, BID(MG/ML)
     Route: 047

REACTIONS (4)
  - Ocular hyperaemia [Unknown]
  - Periorbital swelling [Unknown]
  - Hypersensitivity [Unknown]
  - Eye irritation [Unknown]
